FAERS Safety Report 24152848 (Version 1)
Quarter: 2024Q3

REPORT INFORMATION
  Report Type: Spontaneous
  Country: US (occurrence: None)
  Receive Date: 20240729
  Receipt Date: 20240729
  Transmission Date: 20241017
  Serious: No
  Sender: Public
  Company Number: None

PATIENT
  Age: 68 Year
  Sex: Female
  Weight: 60.75 kg

DRUGS (8)
  1. LASTACAFT [Suspect]
     Active Substance: ALCAFTADINE
     Indication: Eyelids pruritus
     Dosage: OTHER QUANTITY : 1 DROP(S);?FREQUENCY : DAILY;?
     Route: 047
     Dates: start: 20240729, end: 20240729
  2. PAXIL [Concomitant]
     Active Substance: PAROXETINE HYDROCHLORIDE
  3. DEVICE [Concomitant]
     Active Substance: DEVICE
  4. ASCORBIC ACID [Concomitant]
     Active Substance: ASCORBIC ACID
  5. D [Concomitant]
  6. METHYLCOBALAMIN [Concomitant]
     Active Substance: METHYLCOBALAMIN
  7. IRON [Concomitant]
     Active Substance: IRON
  8. CALCIUM [Concomitant]
     Active Substance: CALCIUM

REACTIONS (1)
  - Somnolence [None]

NARRATIVE: CASE EVENT DATE: 20240729
